FAERS Safety Report 7127862-1 (Version None)
Quarter: 2010Q4

REPORT INFORMATION
  Report Type: 
  Country: None (occurrence: None)
  Receive Date: 20101029
  Receipt Date: 20100730
  Transmission Date: 20110411
  Serious: No
  Sender: FDA-Public Use
  Company Number: US-003370

PATIENT
  Age: 59 Year
  Sex: Male

DRUGS (3)
  1. FIRMAGON [Suspect]
     Indication: PRODUCT USED FOR UNKNOWN INDICATION
     Dosage: (80 MG 1X/MONTH SUBCUTANEOUS)
     Route: 058
     Dates: start: 20100730
  2. AMBIEN [Concomitant]
  3. ALPRAZOLAM [Concomitant]

REACTIONS (4)
  - INJECTION SITE ERYTHEMA [None]
  - INJECTION SITE PAIN [None]
  - INJECTION SITE PRURITUS [None]
  - INJECTION SITE SWELLING [None]
